FAERS Safety Report 5133543-6 (Version None)
Quarter: 2006Q4

REPORT INFORMATION
  Report Type: 
  Country: None (occurrence: None)
  Receive Date: 20061024
  Receipt Date: 20060505
  Transmission Date: 20070319
  Serious: Yes (Hospitalization, Other)
  Sender: FDA-Public Use
  Company Number: US-BAYER-200613394BWH

PATIENT
  Age: 82 Year
  Sex: Female

DRUGS (2)
  1. NEXAVAR [Suspect]
     Indication: RENAL CELL CARCINOMA STAGE UNSPECIFIED
     Dosage: TOTAL DAILY DOSE: 800 MG  UNIT DOSE: 200 MG
     Route: 048
     Dates: start: 20060401
  2. NEXAVAR [Suspect]
     Dosage: TOTAL DAILY DOSE: 400 MG  UNIT DOSE: 200 MG
     Route: 048
     Dates: start: 20060501

REACTIONS (7)
  - BLOOD PRESSURE INCREASED [None]
  - BRAIN NEOPLASM [None]
  - CONVULSION [None]
  - INFECTED SKIN ULCER [None]
  - PRURITUS [None]
  - SCAB [None]
  - SKIN DISORDER [None]
